FAERS Safety Report 12994407 (Version 1)
Quarter: 2016Q4

REPORT INFORMATION
  Report Type: Spontaneous
  Country: US (occurrence: US)
  Receive Date: 20161202
  Receipt Date: 20161202
  Transmission Date: 20170207
  Serious: Yes (Other)
  Sender: FDA-Public Use
  Company Number: None

PATIENT
  Age: 46 Year
  Sex: Male
  Weight: 111.15 kg

DRUGS (2)
  1. OXYCODONE [Suspect]
     Active Substance: OXYCODONE
     Indication: NEURALGIA
     Dosage: ?          OTHER FREQUENCY:Q 3 HOURS;?
     Route: 048
     Dates: start: 20161013, end: 20161129
  2. ROPINAROLE [Concomitant]

REACTIONS (2)
  - Drug effect decreased [None]
  - Emotional distress [None]

NARRATIVE: CASE EVENT DATE: 20161123
